FAERS Safety Report 5285489-0 (Version None)
Quarter: 2007Q1

REPORT INFORMATION
  Report Type: 
  Country: None (occurrence: None)
  Receive Date: 20070328
  Receipt Date: 20061127
  Transmission Date: 20070707
  Serious: Yes (Hospitalization, Other)
  Sender: FDA-Public Use
  Company Number: 2006SP007298

PATIENT
  Age: 48 Year
  Sex: Female
  Weight: 76.6579 kg

DRUGS (4)
  1. PEG-INTRON [Suspect]
     Indication: HEPATITIS C
     Dosage: SC
     Route: 058
     Dates: start: 20061019, end: 20061201
  2. RIBAVIRIN [Suspect]
     Indication: HEPATITIS C
     Dosage: PO
     Route: 048
     Dates: start: 20061019, end: 20061201
  3. DILANTIN [Concomitant]
  4. FORTEO [Concomitant]

REACTIONS (20)
  - ANAEMIA [None]
  - ASTHENIA [None]
  - BALANCE DISORDER [None]
  - BLOOD MAGNESIUM DECREASED [None]
  - BLOOD POTASSIUM DECREASED [None]
  - CATATONIA [None]
  - CHOLELITHIASIS [None]
  - CONDITION AGGRAVATED [None]
  - DELIRIUM [None]
  - DIARRHOEA [None]
  - DYSGEUSIA [None]
  - INCOHERENT [None]
  - INFLUENZA LIKE ILLNESS [None]
  - MEMORY IMPAIRMENT [None]
  - PANCREATITIS [None]
  - PRURITUS [None]
  - RED BLOOD CELL COUNT DECREASED [None]
  - SCRATCH [None]
  - WEIGHT DECREASED [None]
  - WHITE BLOOD CELL COUNT DECREASED [None]
